FAERS Safety Report 9168114 (Version 1)
Quarter: 2013Q1

REPORT INFORMATION
  Report Type: Spontaneous
  Country: US (occurrence: US)
  Receive Date: 20130318
  Receipt Date: 20130318
  Transmission Date: 20140127
  Serious: No
  Sender: FDA-Public Use
  Company Number: US-PFIZER INC-2013087907

PATIENT
  Age: 45 Year
  Sex: Male
  Weight: 79.37 kg

DRUGS (3)
  1. VIAGRA [Suspect]
     Indication: ERECTILE DYSFUNCTION
     Dosage: TWO 100 MG TABLETS
  2. VIAGRA [Interacting]
     Dosage: 100 MG, AS NEEDED
  3. WELLBUTRIN [Interacting]
     Indication: DEPRESSION
     Dosage: 300 MG, 1X/DAY

REACTIONS (5)
  - Drug interaction [Unknown]
  - Drug ineffective [Unknown]
  - Flushing [Unknown]
  - Feeling hot [Unknown]
  - Incorrect dose administered [Unknown]
